FAERS Safety Report 5163061-0 (Version None)
Quarter: 2006Q4

REPORT INFORMATION
  Report Type: 
  Country: None (occurrence: None)
  Receive Date: 20061201
  Receipt Date: 20061121
  Transmission Date: 20070319
  Serious: Yes (Other)
  Sender: FDA-Public Use
  Company Number: BR-ABBOTT-06P-020-0351241-00

PATIENT
  Sex: Female

DRUGS (2)
  1. HUMIRA [Suspect]
     Indication: RHEUMATOID ARTHRITIS
     Route: 058
     Dates: start: 20040101
  2. UNKNOWN [Concomitant]
     Indication: HYPERTENSION
     Dosage: NOT REPORTED

REACTIONS (3)
  - ARTHRALGIA [None]
  - HAEMANGIOMA OF LIVER [None]
  - OEDEMA PERIPHERAL [None]
